FAERS Safety Report 9930683 (Version 1)
Quarter: 2014Q1

REPORT INFORMATION
  Report Type: Spontaneous
  Country: US (occurrence: US)
  Receive Date: 20140227
  Receipt Date: 20140227
  Transmission Date: 20141002
  Serious: No
  Sender: FDA-Public Use
  Company Number: US-AMGEN-USASP2014000073

PATIENT
  Age: 60 Year
  Sex: Male
  Weight: 129.25 kg

DRUGS (11)
  1. ENBREL [Suspect]
     Indication: PRODUCT USED FOR UNKNOWN INDICATION
     Dosage: 25 MG, TWICE A WEEK
     Route: 058
  2. LISINOPRIL [Concomitant]
     Dosage: 20 MG, UNK
  3. FENOFIBRATE [Concomitant]
     Dosage: 67 MG, UNK
  4. VITAMIN E                          /00110501/ [Concomitant]
     Dosage: 1000 UNIT, UNK
  5. LEVOTHYROXIN [Concomitant]
     Dosage: 100 MCG, UNK
  6. HYDROCHLOROTH [Concomitant]
     Dosage: 12.5 MG, UNK
  7. FISH OIL [Concomitant]
     Dosage: UNK
  8. MYCELEX TROCHE [Concomitant]
     Dosage: 10 MG, UNK
  9. VITAMIN B COMPLEX [Concomitant]
     Dosage: UNK
  10. VITAMIN D                          /00107901/ [Concomitant]
     Dosage: 1000 UNIT, UNK
  11. VITAMIN C                          /00008001/ [Concomitant]
     Dosage: 500 MG, UNK

REACTIONS (1)
  - Dermatitis contact [Unknown]
